FAERS Safety Report 12209732 (Version 3)
Quarter: 2016Q2

REPORT INFORMATION
  Report Type: Spontaneous
  Country: BE (occurrence: BE)
  Receive Date: 20160325
  Receipt Date: 20160513
  Transmission Date: 20160815
  Serious: Yes (Other)
  Sender: FDA-Public Use
  Company Number: BE-AMGEN-BELSP2016009326

PATIENT
  Age: 61 Year
  Sex: Female
  Weight: 65 kg

DRUGS (3)
  1. PROLIA [Suspect]
     Active Substance: DENOSUMAB
     Indication: OSTEOPOROSIS POSTMENOPAUSAL
     Dosage: 60 MG, Q6MO
     Route: 058
     Dates: start: 201506
  2. CALCIUM CARBONATE. [Concomitant]
     Active Substance: CALCIUM CARBONATE
     Indication: OSTEOPOROSIS
     Dosage: UNK UNK, QD
     Dates: start: 2003
  3. D-CURE [Concomitant]
     Indication: OSTEOPOROSIS
     Dosage: UNK UNK, QD
     Dates: start: 2003

REACTIONS (5)
  - Rash [Recovered/Resolved]
  - Toxic skin eruption [Recovered/Resolved]
  - Lichen planus [Unknown]
  - Rash erythematous [Unknown]
  - Vasculitis [Unknown]

NARRATIVE: CASE EVENT DATE: 20150617
